FAERS Safety Report 15401439 (Version 1)
Quarter: 2018Q3

REPORT INFORMATION
  Report Type: Spontaneous
  Country: US (occurrence: US)
  Receive Date: 20180914
  Receipt Date: 20180914
  Transmission Date: 20181010
  Serious: Yes (Other)
  Sender: FDA-Public Use
  Company Number: None

PATIENT
  Age: 58 Year
  Sex: Female
  Weight: 49.95 kg

DRUGS (2)
  1. RANITIDINE. [Suspect]
     Active Substance: RANITIDINE
     Indication: HYPERSENSITIVITY
     Route: 048
     Dates: start: 20180908, end: 20180912
  2. PREDNISONE. [Suspect]
     Active Substance: PREDNISONE
     Indication: HYPERSENSITIVITY
     Route: 048
     Dates: end: 20180912

REACTIONS (3)
  - Neuropathy peripheral [None]
  - Peripheral swelling [None]
  - Poor peripheral circulation [None]

NARRATIVE: CASE EVENT DATE: 20180913
